FAERS Safety Report 11812402 (Version 2)
Quarter: 2015Q4

REPORT INFORMATION
  Report Type: Spontaneous
  Country: US (occurrence: US)
  Receive Date: 20151208
  Receipt Date: 20151215
  Transmission Date: 20160305
  Serious: Yes (Other)
  Sender: FDA-Public Use
  Company Number: US-FRI-1000081523

PATIENT
  Age: 43 Year
  Sex: Female

DRUGS (4)
  1. WELLBUTRIN [Concomitant]
     Active Substance: BUPROPION HYDROCHLORIDE
  2. CITALOPRAM [Concomitant]
     Active Substance: CITALOPRAM HYDROBROMIDE
  3. GABAPENTIN. [Concomitant]
     Active Substance: GABAPENTIN
  4. SAPHRIS [Suspect]
     Active Substance: ASENAPINE MALEATE
     Indication: BIPOLAR DISORDER
     Dosage: 10 MG
     Route: 060
     Dates: start: 20151116, end: 20151117

REACTIONS (2)
  - Hypersensitivity [Recovered/Resolved]
  - Intentional product misuse [Recovered/Resolved]

NARRATIVE: CASE EVENT DATE: 20151116
